FAERS Safety Report 4919133-6 (Version None)
Quarter: 2006Q1

REPORT INFORMATION
  Report Type: 
  Country: None (occurrence: None)
  Receive Date: 20060216
  Receipt Date: 20060203
  Transmission Date: 20060701
  Serious: Yes (Other)
  Sender: FDA-Public Use
  Company Number: 2006019381

PATIENT
  Sex: Male

DRUGS (5)
  1. LITHIUM (LITHIUM) [Suspect]
     Indication: HYPERTENSION
  2. NORVASC [Suspect]
     Indication: ILL-DEFINED DISORDER
  3. ZETIA [Concomitant]
  4. ALL OTHER THRAPEUTIC PRODUCTS (ALL OTHER THERAPEUTIC PRODUCTS) [Concomitant]
  5. LAMICTAL [Concomitant]

REACTIONS (6)
  - BLADDER DISORDER [None]
  - HYPERTENSION [None]
  - PROSTATE EXAMINATION ABNORMAL [None]
  - SURGERY [None]
  - URGE INCONTINENCE [None]
  - URINARY INCONTINENCE [None]
